FAERS Safety Report 22327090 (Version 1)
Quarter: 2023Q2

REPORT INFORMATION
  Report Type: Spontaneous
  Country: US (occurrence: US)
  Receive Date: 20230516
  Receipt Date: 20230516
  Transmission Date: 20230721
  Serious: No
  Sender: FDA-Public Use
  Company Number: US-RADIUS HEALTH INC.-2022US004686

PATIENT
  Sex: Female

DRUGS (6)
  1. TYMLOS [Suspect]
     Active Substance: ABALOPARATIDE
     Indication: Osteoporosis
     Dosage: 80 MCG, QD
     Route: 058
     Dates: start: 20220922, end: 20220928
  2. LISINOPRIL [Concomitant]
     Active Substance: LISINOPRIL
     Indication: Product used for unknown indication
  3. METOPROLOL [Concomitant]
     Active Substance: METOPROLOL
     Indication: Product used for unknown indication
     Dosage: UNK
  4. ASPIRIN [Concomitant]
     Active Substance: ASPIRIN
     Indication: Product used for unknown indication
     Dosage: UNK
  5. EZETIMIBE [Concomitant]
     Active Substance: EZETIMIBE
     Indication: Product used for unknown indication
     Dosage: UNK
  6. NP THYROID [Suspect]
     Active Substance: LEVOTHYROXINE\LIOTHYRONINE
     Indication: Product used for unknown indication
     Dosage: UNK

REACTIONS (7)
  - Blood triglycerides increased [Not Recovered/Not Resolved]
  - Muscular weakness [Recovering/Resolving]
  - Glycosylated haemoglobin increased [Not Recovered/Not Resolved]
  - Blood urea nitrogen/creatinine ratio decreased [Not Recovered/Not Resolved]
  - Muscle spasms [Recovering/Resolving]
  - Arthralgia [Recovering/Resolving]
  - Blood calcium increased [Not Recovered/Not Resolved]
